FAERS Safety Report 18149747 (Version 1)
Quarter: 2020Q3

REPORT INFORMATION
  Report Type: Spontaneous
  Country: US (occurrence: US)
  Receive Date: 20200813
  Receipt Date: 20200813
  Transmission Date: 20201103
  Serious: Yes (Death, Other)
  Sender: FDA-Public Use
  Company Number: None

PATIENT
  Age: 68 Year
  Sex: Male
  Weight: 64.35 kg

DRUGS (17)
  1. CLONIDINE. [Concomitant]
     Active Substance: CLONIDINE
  2. FAMOTIDINE. [Concomitant]
     Active Substance: FAMOTIDINE
  3. PROMETHAZINE [Concomitant]
     Active Substance: PROMETHAZINE HYDROCHLORIDE
  4. CLONAZEPAM. [Concomitant]
     Active Substance: CLONAZEPAM
  5. COLACE [Concomitant]
     Active Substance: DOCUSATE SODIUM
  6. KEYTRUDA [Concomitant]
     Active Substance: PEMBROLIZUMAB
  7. HYDRALAZINE [Concomitant]
     Active Substance: HYDRALAZINE HYDROCHLORIDE
  8. SELZENTRY [Concomitant]
     Active Substance: MARAVIROC
  9. CARVEDILOL. [Concomitant]
     Active Substance: CARVEDILOL
  10. LACTULOSE. [Concomitant]
     Active Substance: LACTULOSE
  11. OXYCODONE [Concomitant]
     Active Substance: OXYCODONE
  12. LINZESS [Concomitant]
     Active Substance: LINACLOTIDE
  13. MEGESTROL [Concomitant]
     Active Substance: MEGESTROL
  14. ABACAVIR. [Concomitant]
     Active Substance: ABACAVIR
  15. MINOXIDIL. [Concomitant]
     Active Substance: MINOXIDIL
  16. TIVICAY [Concomitant]
     Active Substance: DOLUTEGRAVIR SODIUM
  17. PROMACTA [Suspect]
     Active Substance: ELTROMBOPAG OLAMINE
     Indication: IMMUNE THROMBOCYTOPENIA
     Route: 048
     Dates: start: 20200417

REACTIONS (1)
  - Disease progression [None]
